FAERS Safety Report 15125189 (Version 1)
Quarter: 2018Q3

REPORT INFORMATION
  Report Type: Spontaneous
  Country: US (occurrence: US)
  Receive Date: 20180710
  Receipt Date: 20180710
  Transmission Date: 20181010
  Serious: No
  Sender: FDA-Public Use
  Company Number: US-SUN PHARMACEUTICAL INDUSTRIES LTD-2018US-171814

PATIENT
  Age: 19 Year
  Sex: Female

DRUGS (1)
  1. ABSORICA [Suspect]
     Active Substance: ISOTRETINOIN
     Indication: PRODUCT USED FOR UNKNOWN INDICATION
     Dosage: UNK
     Route: 065
     Dates: start: 20180419

REACTIONS (10)
  - Feeling abnormal [Not Recovered/Not Resolved]
  - Lip swelling [Not Recovered/Not Resolved]
  - Disturbance in attention [Unknown]
  - Sleep disorder [Not Recovered/Not Resolved]
  - Dandruff [Unknown]
  - Memory impairment [Unknown]
  - Apathy [Not Recovered/Not Resolved]
  - Headache [Not Recovered/Not Resolved]
  - Dysarthria [Unknown]
  - Head discomfort [Not Recovered/Not Resolved]

NARRATIVE: CASE EVENT DATE: 201804
